FAERS Safety Report 12225474 (Version 1)
Quarter: 2016Q1

REPORT INFORMATION
  Report Type: Not Available
  Country: None (occurrence: US)
  Receive Date: 20160331
  Receipt Date: 20160331
  Transmission Date: 20160526
  Serious: No
  Sender: FDA-Public Use
  Company Number: US-AKORN-15468

PATIENT
  Age: 56 Year
  Sex: Female

DRUGS (1)
  1. BENZTROPINE MESYLATE INJECTION [Suspect]
     Active Substance: BENZTROPINE MESYLATE

REACTIONS (2)
  - Nervousness [None]
  - Dysphemia [Recovered/Resolved]
